FAERS Safety Report 4810978-X (Version None)
Quarter: 2005Q4

REPORT INFORMATION
  Report Type: 
  Country: None (occurrence: None)
  Receive Date: 20051027
  Receipt Date: 20051024
  Transmission Date: 20060501
  Serious: Yes (Life-Threatening, Hospitalization, Other)
  Sender: FDA-Public Use
  Company Number: PHBS2005FI15649

PATIENT
  Age: 64 Year
  Sex: Male

DRUGS (3)
  1. TERBINAFINE HCL [Suspect]
     Indication: ONYCHOMYCOSIS
     Dosage: 250 MG, QD
     Route: 048
  2. THYROXINE [Concomitant]
     Indication: HYPOTHYROIDISM
  3. ANTIBIOTICS [Suspect]

REACTIONS (20)
  - ABNORMAL BEHAVIOUR [None]
  - ALANINE AMINOTRANSFERASE INCREASED [None]
  - BILIARY TRACT DISORDER [None]
  - BLOOD BILIRUBIN INCREASED [None]
  - BLOOD CREATININE INCREASED [None]
  - BRADYPHRENIA [None]
  - CHOLESTASIS [None]
  - DIALYSIS [None]
  - DRUG HYPERSENSITIVITY [None]
  - GENERAL PHYSICAL HEALTH DETERIORATION [None]
  - HEPATIC ENCEPHALOPATHY [None]
  - HORSESHOE KIDNEY [None]
  - JAUNDICE [None]
  - LIVER FUNCTION TEST ABNORMAL [None]
  - PROTHROMBIN LEVEL ABNORMAL [None]
  - PRURITUS [None]
  - PYREXIA [None]
  - SKIN INJURY [None]
  - STAPHYLOCOCCAL SEPSIS [None]
  - URINE OUTPUT DECREASED [None]
